FAERS Safety Report 8890335 (Version 2)
Quarter: 2014Q1

REPORT INFORMATION
  Report Type: Report from Study
  Country: MX (occurrence: MX)
  Receive Date: 20121107
  Receipt Date: 20140110
  Transmission Date: 20141002
  Serious: Yes (Other)
  Sender: FDA-Public Use
  Company Number: PHHY2012MX101512

PATIENT
  Age: 89 Year
  Sex: Female

DRUGS (7)
  1. STALEVO [Suspect]
     Indication: PARKINSON^S DISEASE
     Dosage: 2 DF (200/100/25 MG) PER DAY
     Route: 048
     Dates: start: 2009, end: 201301
  2. STALEVO [Suspect]
     Dosage: 1 DF (200/100/25 MG), DAILY
     Route: 048
     Dates: start: 201301
  3. STALEVO [Suspect]
     Dosage: 1 DF (200/100/25 MG, HALF TABLET IN THE MORNING AND HALF TABLET AT NIGHT), PRN
     Route: 048
     Dates: start: 201301
  4. MICARDIS [Concomitant]
     Indication: HYPERTENSION
     Dosage: 1 DF, DAILY
  5. NORVAS [Concomitant]
     Indication: HYPERTENSION
     Dosage: 1 DF, DAILY
  6. IMIPRAMINE [Concomitant]
     Dosage: UNK UKN, UNK
  7. TAFIL [Concomitant]
     Indication: INSOMNIA
     Dosage: 2 DF(1 TABLET OF 0.25 MG IN THE MORNING AND 1 TABLET OF 0.50 MG AT NIGHT), DAILY
     Dates: start: 201101

REACTIONS (10)
  - Humerus fracture [Recovered/Resolved]
  - Upper limb fracture [Recovered/Resolved]
  - Fall [Not Recovered/Not Resolved]
  - Eating disorder [Not Recovered/Not Resolved]
  - Sleep disorder [Not Recovered/Not Resolved]
  - Constipation [Not Recovered/Not Resolved]
  - Wrong technique in drug usage process [Not Recovered/Not Resolved]
  - Intentional drug misuse [Not Recovered/Not Resolved]
  - Vomiting [Not Recovered/Not Resolved]
  - Nausea [Not Recovered/Not Resolved]
